FAERS Safety Report 15703035 (Version 1)
Quarter: 2018Q4

REPORT INFORMATION
  Report Type: Report from Study
  Country: FR (occurrence: FR)
  Receive Date: 20181210
  Receipt Date: 20181210
  Transmission Date: 20190205
  Serious: Yes (Death)
  Sender: FDA-Public Use
  Company Number: FR-TEVA-2018-FR-985743

PATIENT
  Age: 65 Year
  Sex: Male

DRUGS (9)
  1. AMOXICILLIN. [Suspect]
     Active Substance: AMOXICILLIN
     Indication: PULMONARY NOCARDIOSIS
     Dosage: 4 GRAM DAILY;
     Route: 042
  2. TRIMETHOPRIM/SULFAMETHOXAZOLE [Concomitant]
     Active Substance: SULFAMETHOXAZOLE\TRIMETHOPRIM
     Indication: PROPHYLAXIS
     Dosage: THREE TIMES A WEEK
     Route: 065
  3. CIPROFLOXACIN. [Suspect]
     Active Substance: CIPROFLOXACIN
     Indication: PULMONARY NOCARDIOSIS
     Dosage: 800 MILLIGRAM DAILY;
     Route: 042
  4. PIPERACILLIN/TAZOBACTAM [Suspect]
     Active Substance: PIPERACILLIN SODIUM\TAZOBACTAM SODIUM
     Indication: PULMONARY NOCARDIOSIS
     Dosage: 16 GRAM DAILY;
     Route: 065
  5. LINEZOLID. [Suspect]
     Active Substance: LINEZOLID
     Indication: PULMONARY NOCARDIOSIS
     Dosage: 1200 MILLIGRAM DAILY;
     Route: 042
  6. CEFTRIAXONE. [Suspect]
     Active Substance: CEFTRIAXONE
     Indication: PULMONARY NOCARDIOSIS
     Dosage: 2 GRAM DAILY;
     Route: 042
  7. LEVOFLOXACIN. [Suspect]
     Active Substance: LEVOFLOXACIN
     Indication: PULMONARY NOCARDIOSIS
     Dosage: 1000 MILLIGRAM DAILY;
     Route: 048
  8. IBRUTINIB [Concomitant]
     Active Substance: IBRUTINIB
     Indication: CHRONIC LYMPHOCYTIC LEUKAEMIA
     Route: 065
  9. AMIKACIN. [Concomitant]
     Active Substance: AMIKACIN
     Indication: PULMONARY NOCARDIOSIS
     Route: 042

REACTIONS (1)
  - Drug ineffective [Fatal]
